FAERS Safety Report 4486836-X (Version None)
Quarter: 2004Q3

REPORT INFORMATION
  Report Type: 
  Country: None (occurrence: None)
  Receive Date: 20040921
  Receipt Date: 20040224
  Transmission Date: 20050211
  Serious: Yes (Hospitalization)
  Sender: FDA-Public Use
  Company Number: 163-20785-04020709

PATIENT
  Age: 58 Year
  Sex: Male
  Weight: 97 kg

DRUGS (11)
  1. THALOMID (THALIDOMIDE) (50 MILLIGRA , CAPSULES) [Suspect]
     Indication: MULTIPLE MYELOMA
     Dosage: 400 MG, QD, ORAL
     Route: 048
     Dates: start: 20040117, end: 20040101
  2. VINCRISTINE [Suspect]
     Indication: MULTIPLE MYELOMA
     Dosage: 0.5 MG, QD, INTRAVENOUS
     Route: 042
     Dates: start: 20040117, end: 20040118
  3. ADRIAMYCIN PFS [Suspect]
     Indication: MULTIPLE MYELOMA
     Dosage: 20 MG, QD, INTRAVENOUS
     Route: 042
     Dates: start: 20040117, end: 20040101
  4. DEXAMETHASONE [Suspect]
     Dosage: 40 MG, QD, PO
     Route: 048
     Dates: start: 20040117, end: 20040201
  5. FLUCONAZOLE [Concomitant]
  6. ACYCLOVIR [Concomitant]
  7. ATIVAN [Concomitant]
  8. MULTIVITAMIN [Concomitant]
  9. LOVENOX [Concomitant]
  10. LEVOTHYROXINE SODIUM [Concomitant]
  11. FE(IRON PREPARATIONS) [Concomitant]

REACTIONS (6)
  - ASTHENIA [None]
  - BRADYCARDIA [None]
  - EPIDIDYMITIS [None]
  - FAECAL OCCULT BLOOD POSITIVE [None]
  - HYPERHIDROSIS [None]
  - NAUSEA [None]
